FAERS Safety Report 4394726-6 (Version None)
Quarter: 2004Q3

REPORT INFORMATION
  Report Type: 
  Country: None (occurrence: None)
  Receive Date: 20040712
  Receipt Date: 20020131
  Transmission Date: 20050211
  Serious: Yes (Other)
  Sender: FDA-Public Use
  Company Number: PHBS2002AU01537

PATIENT
  Age: 40 Year
  Sex: Male

DRUGS (2)
  1. CLOZARIL [Suspect]
     Indication: SCHIZOPHRENIA
     Dosage: 25 - 700 MG/DAY
     Route: 048
     Dates: start: 19950214
  2. SERTRALINE HCL [Concomitant]
     Indication: DEPRESSION
     Dosage: 50 MG/DAY
     Route: 065
     Dates: start: 20031105

REACTIONS (4)
  - DIABETES MELLITUS [None]
  - HYPERGLYCAEMIA [None]
  - IMPAIRED FASTING GLUCOSE [None]
  - LIPID METABOLISM DISORDER [None]
